FAERS Safety Report 8877343 (Version 1)
Quarter: 2012Q4

REPORT INFORMATION
  Report Type: 
  Country: US (occurrence: US)
  Receive Date: 20121023
  Receipt Date: 20121023
  Transmission Date: 20130627
  Serious: No
  Sender: FDA-Public Use
  Company Number: US-AMGEN-USASP2012060085

PATIENT
  Sex: Male
  Weight: 122.45 kg

DRUGS (16)
  1. ENBREL [Suspect]
     Indication: PRODUCT USED FOR UNKNOWN INDICATION
     Dosage: 50 mg, qwk
     Route: 058
  2. FUROSEMIDE [Concomitant]
     Dosage: 80 mg, UNK
  3. CYMBALTA [Concomitant]
     Dosage: 20 mg, UNK
  4. FOLIC ACID [Concomitant]
     Dosage: UNK
  5. CALCIUM [Concomitant]
     Dosage: 500 UNK, UNK
  6. VITAMIN D /00107901/ [Concomitant]
     Dosage: 100 units
  7. HUMALOG [Concomitant]
     Dosage: 75/25KWP
  8. METFORMIN [Concomitant]
     Dosage: 500 mg, UNK
  9. WARFARIN [Concomitant]
     Dosage: 10 mg, UNK
  10. PRAVASTATIN [Concomitant]
     Dosage: 10 mg, UNK
  11. FINASTERIDE [Concomitant]
     Dosage: 5 mg, UNK
  12. TAMSULOSIN [Concomitant]
     Dosage: 0.4 mg, UNK
  13. QUINAPRIL [Concomitant]
     Dosage: 20 mg, UNK
  14. SUBOXONE [Concomitant]
     Dosage: 2-0.5 mg
  15. ICAPS [Concomitant]
     Dosage: UNK
  16. IRON [Concomitant]
     Dosage: 325 mg, UNK

REACTIONS (1)
  - Cellulitis [Unknown]
